FAERS Safety Report 11866575 (Version 1)
Quarter: 2015Q4

REPORT INFORMATION
  Report Type: Report from Study
  Country: US (occurrence: US)
  Receive Date: 20151224
  Receipt Date: 20151224
  Transmission Date: 20160305
  Serious: Yes (Other)
  Sender: FDA-Public Use
  Company Number: PHEH2015US026374

PATIENT
  Age: 40 Year
  Sex: Male

DRUGS (1)
  1. OCTREOTIDE. [Suspect]
     Active Substance: OCTREOTIDE
     Indication: CARCINOID SYNDROME
     Route: 065

REACTIONS (4)
  - Hepatic cancer recurrent [Unknown]
  - Metastases to liver [Unknown]
  - Tumour marker increased [Unknown]
  - Malignant neoplasm progression [Unknown]
